FAERS Safety Report 16567434 (Version 2)
Quarter: 2020Q1

REPORT INFORMATION
  Report Type: Spontaneous
  Country: US (occurrence: US)
  Receive Date: 20190712
  Receipt Date: 20200309
  Transmission Date: 20200409
  Serious: Yes (Other)
  Sender: FDA-Public Use
  Company Number: US-ASTRAZENECA-2019SE98698

PATIENT
  Sex: Female
  Weight: 64 kg

DRUGS (73)
  1. CHLORTHALIDONE. [Concomitant]
     Active Substance: CHLORTHALIDONE
     Indication: OEDEMA
  2. CALCIUM CARBONATE. [Concomitant]
     Active Substance: CALCIUM CARBONATE
  3. POTASSIUM CHLORIDE. [Concomitant]
     Active Substance: POTASSIUM CHLORIDE
     Route: 048
  4. SIMVASTATIN. [Concomitant]
     Active Substance: SIMVASTATIN
     Route: 048
  5. HYDRALAZINE [Concomitant]
     Active Substance: HYDRALAZINE HYDROCHLORIDE
     Route: 065
  6. METOPROLOL TARTRATE. [Concomitant]
     Active Substance: METOPROLOL TARTRATE
     Route: 048
  7. XYLOCAINE [Concomitant]
     Active Substance: LIDOCAINE HYDROCHLORIDE
  8. SENNA [Concomitant]
     Active Substance: SENNA LEAF\SENNOSIDES\SENNOSIDES A AND B
     Route: 065
  9. CEFTRIAXONE. [Concomitant]
     Active Substance: CEFTRIAXONE
     Route: 065
  10. NEXIUM [Suspect]
     Active Substance: ESOMEPRAZOLE MAGNESIUM
     Indication: GASTROOESOPHAGEAL REFLUX DISEASE
     Route: 048
     Dates: start: 200102
  11. NEXIUM [Suspect]
     Active Substance: ESOMEPRAZOLE MAGNESIUM
     Indication: GASTROOESOPHAGEAL REFLUX DISEASE
     Route: 048
     Dates: start: 2006, end: 2015
  12. NEXIUM [Suspect]
     Active Substance: ESOMEPRAZOLE MAGNESIUM
     Indication: GASTROOESOPHAGEAL REFLUX DISEASE
     Dosage: GENERIC40.0MG UNKNOWN
     Route: 065
     Dates: start: 2018
  13. TRAMADOL. [Concomitant]
     Active Substance: TRAMADOL
     Route: 048
  14. DICYCLOMINE HYDROCHLORIDE. [Concomitant]
     Active Substance: DICYCLOMINE HYDROCHLORIDE
     Dosage: 20.0MG UNKNOWN
     Route: 048
     Dates: start: 20120715
  15. PREVNAR [Concomitant]
     Active Substance: PNEUMOCOCCAL 7-VALENT CONJUGATE VACCINE (DIPHTHERIA CRM197 PROTEIN)
     Route: 065
  16. LISINOPRIL. [Concomitant]
     Active Substance: LISINOPRIL
     Route: 065
  17. ERTAPENEM. [Concomitant]
     Active Substance: ERTAPENEM SODIUM
     Route: 065
  18. NEXIUM [Suspect]
     Active Substance: ESOMEPRAZOLE MAGNESIUM
     Indication: GASTROOESOPHAGEAL REFLUX DISEASE
     Dosage: 40.0MG UNKNOWN
     Route: 048
     Dates: start: 20060626
  19. VITAMIN C [Concomitant]
     Active Substance: ASCORBIC ACID
     Indication: ROUTINE HEALTH MAINTENANCE
  20. TERAZOSIN [Concomitant]
     Active Substance: TERAZOSIN HYDROCHLORIDE
     Route: 048
  21. QUINAPRIL. [Concomitant]
     Active Substance: QUINAPRIL
     Route: 048
  22. CYCLOBENZAPRINE. [Concomitant]
     Active Substance: CYCLOBENZAPRINE
     Route: 065
  23. METOCLOPRAMIDE. [Concomitant]
     Active Substance: METOCLOPRAMIDE
     Dosage: 10.0MG UNKNOWN
     Route: 048
  24. VERSED [Concomitant]
     Active Substance: MIDAZOLAM HYDROCHLORIDE
  25. COLACE [Concomitant]
     Active Substance: DOCUSATE SODIUM
     Route: 048
  26. NITROQUICK [Concomitant]
     Active Substance: NITROGLYCERIN
     Dosage: 0.4MG UNKNOWN
     Route: 048
  27. METHYLPREDNISOLONE. [Concomitant]
     Active Substance: METHYLPREDNISOLONE
     Dosage: 4.0MG UNKNOWN
     Route: 048
     Dates: start: 20110221
  28. BENICAR [Concomitant]
     Active Substance: OLMESARTAN MEDOXOMIL
     Dosage: 20.0MG UNKNOWN
     Route: 048
     Dates: start: 20130603
  29. FAMOTIDINE. [Concomitant]
     Active Substance: FAMOTIDINE
     Route: 048
  30. LORAZEPAM. [Concomitant]
     Active Substance: LORAZEPAM
     Route: 065
  31. ZOLPIDEM TARTRATE. [Concomitant]
     Active Substance: ZOLPIDEM TARTRATE
     Route: 065
  32. OMEPRAZOLE. [Suspect]
     Active Substance: OMEPRAZOLE
     Indication: GASTROOESOPHAGEAL REFLUX DISEASE
     Dosage: 40.0MG UNKNOWN
     Route: 048
     Dates: start: 2016, end: 2017
  33. ATORVASTATIN [Concomitant]
     Active Substance: ATORVASTATIN
     Indication: HYPERLIPIDAEMIA
     Dates: start: 2005
  34. FERROUS SULFATE. [Concomitant]
     Active Substance: FERROUS SULFATE
     Dosage: 325.0MG UNKNOWN
     Route: 048
  35. CINNAMON. [Concomitant]
     Active Substance: CINNAMON
  36. KRISTALOSE [Concomitant]
     Active Substance: LACTULOSE
  37. AZITHROMYCIN ANHYDROUS. [Concomitant]
     Active Substance: AZITHROMYCIN ANHYDROUS
     Dosage: 250.0MG UNKNOWN
     Route: 048
     Dates: start: 20101020
  38. EPINEPHRINE. [Concomitant]
     Active Substance: EPINEPHRINE
     Route: 065
  39. MIRALAX [Concomitant]
     Active Substance: POLYETHYLENE GLYCOL 3350
     Route: 065
  40. IMDUR [Concomitant]
     Active Substance: ISOSORBIDE MONONITRATE
     Route: 065
  41. OSELTAMIVIR PHOSPHATE. [Concomitant]
     Active Substance: OSELTAMIVIR PHOSPHATE
     Route: 048
  42. RANEXA [Concomitant]
     Active Substance: RANOLAZINE
     Indication: ANGINA PECTORIS
     Route: 065
     Dates: start: 2014
  43. PROAIR HFA [Concomitant]
     Active Substance: ALBUTEROL SULFATE
     Route: 048
  44. ENOXAPARIN [Concomitant]
     Active Substance: ENOXAPARIN
     Route: 048
  45. PREDNISONE. [Concomitant]
     Active Substance: PREDNISONE
     Dosage: 20.0MG UNKNOWN
     Route: 048
     Dates: start: 20080301
  46. VOLTAREN [Concomitant]
     Active Substance: DICLOFENAC SODIUM
     Route: 065
  47. IPRATROPIUM [Concomitant]
     Active Substance: IPRATROPIUM
     Route: 065
  48. PROTONIX [Suspect]
     Active Substance: PANTOPRAZOLE SODIUM
     Indication: GASTROOESOPHAGEAL REFLUX DISEASE
     Dosage: 40.0MG UNKNOWN
     Route: 065
     Dates: start: 2016
  49. FISH OIL [Concomitant]
     Active Substance: FISH OIL
     Indication: ROUTINE HEALTH MAINTENANCE
  50. CLONIDINE. [Concomitant]
     Active Substance: CLONIDINE
     Dosage: 0.1MG UNKNOWN
     Route: 048
  51. DEXTROSE. [Concomitant]
     Active Substance: DEXTROSE
     Route: 065
  52. MUPIROCIN. [Concomitant]
     Active Substance: MUPIROCIN
     Route: 065
  53. CLINDAMYCIN. [Concomitant]
     Active Substance: CLINDAMYCIN
     Route: 065
  54. BACITRACIN. [Concomitant]
     Active Substance: BACITRACIN
  55. ROBITUSSIN (GUAIFENESIN) [Concomitant]
     Active Substance: GUAIFENESIN
     Route: 065
  56. LYRICA [Concomitant]
     Active Substance: PREGABALIN
     Dosage: 50.0MG UNKNOWN
     Route: 048
     Dates: start: 20151120
  57. NEXIUM [Suspect]
     Active Substance: ESOMEPRAZOLE MAGNESIUM
     Indication: GASTROOESOPHAGEAL REFLUX DISEASE
     Route: 048
  58. HYDROCODONE BITARTRATE AND ACETAMINOPHEN [Concomitant]
     Active Substance: ACETAMINOPHEN\HYDROCODONE BITARTRATE
     Route: 048
  59. GABAPENTIN. [Concomitant]
     Active Substance: GABAPENTIN
     Route: 048
  60. PROTAMINE [Concomitant]
     Active Substance: PROTAMINE
  61. ERGOCALCIFEROL. [Concomitant]
     Active Substance: ERGOCALCIFEROL
     Dosage: 1.25MG UNKNOWN
     Route: 048
     Dates: start: 20100622
  62. CLOPIDOGREL [Concomitant]
     Active Substance: CLOPIDOGREL BISULFATE
     Dosage: 75.0MG UNKNOWN
     Route: 048
     Dates: start: 20140729
  63. VITAMIN E [Concomitant]
     Active Substance: .ALPHA.-TOCOPHEROL
     Route: 048
  64. PROTONIX [Suspect]
     Active Substance: PANTOPRAZOLE SODIUM
     Indication: GASTROOESOPHAGEAL REFLUX DISEASE
     Dosage: 40.0MG UNKNOWN
     Route: 048
  65. NORVASC [Concomitant]
     Active Substance: AMLODIPINE BESYLATE
     Indication: HYPERTENSION
     Route: 065
  66. ASPIRIN. [Concomitant]
     Active Substance: ASPIRIN
     Dosage: 81.0MG UNKNOWN
     Route: 048
  67. LOSARTAN. [Concomitant]
     Active Substance: LOSARTAN
     Route: 048
  68. ONDANSETRON [Concomitant]
     Active Substance: ONDANSETRON
     Route: 048
  69. METFORMIN [Concomitant]
     Active Substance: METFORMIN HYDROCHLORIDE
     Dosage: 500.0MG UNKNOWN
     Route: 048
  70. BYSTOLIC [Concomitant]
     Active Substance: NEBIVOLOL HYDROCHLORIDE
     Dosage: 10.0MG UNKNOWN
     Route: 048
     Dates: start: 20130522
  71. CARAFATE [Concomitant]
     Active Substance: SUCRALFATE
     Dosage: 1000.0MG UNKNOWN
     Route: 048
  72. METRONIDAZOLE. [Concomitant]
     Active Substance: METRONIDAZOLE
     Route: 065
  73. MOXIFLOXACIN. [Concomitant]
     Active Substance: MOXIFLOXACIN
     Route: 065

REACTIONS (2)
  - Chronic kidney disease [Not Recovered/Not Resolved]
  - Renal failure [Unknown]
